FAERS Safety Report 10873731 (Version 1)
Quarter: 2015Q1

REPORT INFORMATION
  Report Type: Spontaneous
  Country: US (occurrence: US)
  Receive Date: 20150227
  Receipt Date: 20150227
  Transmission Date: 20150721
  Serious: Yes (Hospitalization)
  Sender: FDA-Public Use
  Company Number: US-ASTRAZENECA-2015SE17994

PATIENT
  Age: 14442 Day
  Sex: Female
  Weight: 55.8 kg

DRUGS (3)
  1. PULMICORT FLEXHALER [Suspect]
     Active Substance: BUDESONIDE
     Indication: ASTHMA
     Dosage: 90 MCG, 2 PUFFS, TWO TIMES A DAY
     Route: 055
     Dates: start: 20150204, end: 20150205
  2. XANAX [Concomitant]
     Active Substance: ALPRAZOLAM
     Indication: ANXIETY
     Dosage: ONE QUARTER TO ONE HALF, PRN
  3. PULMICORT FLEXHALER [Suspect]
     Active Substance: BUDESONIDE
     Indication: ATYPICAL PNEUMONIA
     Dosage: 90 MCG, 2 PUFFS, TWO TIMES A DAY
     Route: 055
     Dates: start: 20150204, end: 20150205

REACTIONS (8)
  - Product use issue [Unknown]
  - Hyperventilation [Recovered/Resolved]
  - Exposure during pregnancy [Unknown]
  - Tremor [Recovered/Resolved]
  - Palpitations [Recovered/Resolved]
  - Wheezing [Recovered/Resolved]
  - Hyperhidrosis [Recovered/Resolved]
  - Panic reaction [Unknown]

NARRATIVE: CASE EVENT DATE: 20150204
